FAERS Safety Report 24294151 (Version 1)
Quarter: 2024Q3

REPORT INFORMATION
  Report Type: Spontaneous
  Country: US (occurrence: US)
  Receive Date: 20240906
  Receipt Date: 20240906
  Transmission Date: 20241017
  Serious: No
  Sender: DOMPE FARMACEUTICI
  Company Number: US-FARMAPROD-202308-202404-1552

PATIENT
  Age: 76 Year
  Sex: Female

DRUGS (33)
  1. OXERVATE [Suspect]
     Active Substance: CENEGERMIN-BKBJ
     Indication: Neurotrophic keratopathy
     Route: 047
     Dates: start: 20240421
  2. OXERVATE [Suspect]
     Active Substance: CENEGERMIN-BKBJ
  3. ASMANEX [Concomitant]
     Active Substance: MOMETASONE FUROATE
     Dosage: 220MCG(30)
  4. OXYBUTYNIN CHLORIDE [Concomitant]
     Active Substance: OXYBUTYNIN CHLORIDE
  5. METOPROLOL TARTRATE [Concomitant]
     Active Substance: METOPROLOL TARTRATE
  6. LEVOTHYROXINE SODIUM [Concomitant]
     Active Substance: LEVOTHYROXINE SODIUM
  7. NARCAN [Concomitant]
     Active Substance: NALOXONE HYDROCHLORIDE
     Dosage: SPRAY
  8. ZOLMITRIPTAN [Concomitant]
     Active Substance: ZOLMITRIPTAN
  9. XIIDRA [Concomitant]
     Active Substance: LIFITEGRAST
  10. TYRVAYA [Concomitant]
     Active Substance: VARENICLINE TARTRATE
     Dosage: 0.03 SPRAY
  11. DUTASTERIDE [Concomitant]
     Active Substance: DUTASTERIDE
  12. THYROGEN [Concomitant]
     Active Substance: THYROTROPIN ALFA
     Dosage: VIAL
  13. OXYGEN [Concomitant]
     Active Substance: OXYGEN
  14. PREVACID [Concomitant]
     Active Substance: LANSOPRAZOLE
  15. VITAMINS [Concomitant]
     Active Substance: VITAMINS
  16. ZOMIG [Concomitant]
     Active Substance: ZOLMITRIPTAN
  17. DICLOFENAC [Concomitant]
     Active Substance: DICLOFENAC
  18. FINASTERIDE [Concomitant]
     Active Substance: FINASTERIDE
  19. DUREZOL [Concomitant]
     Active Substance: DIFLUPREDNATE
     Dosage: IN RIGHT EYE
  20. FLAREX [Concomitant]
     Active Substance: FLUOROMETHOLONE ACETATE
  21. DIPHENHYDRAMINE [Concomitant]
     Active Substance: DIPHENHYDRAMINE
  22. GAMMAGARD LIQUID [Concomitant]
     Active Substance: HUMAN IMMUNOGLOBULIN G
  23. SODIUM CHLORIDE [Concomitant]
     Active Substance: SODIUM CHLORIDE
  24. TERCONAZOLE [Concomitant]
     Active Substance: TERCONAZOLE
  25. TRIAMCINOLONE [Concomitant]
     Active Substance: TRIAMCINOLONE
  26. ALBUTEROL SULFATE [Concomitant]
     Active Substance: ALBUTEROL SULFATE
  27. AZITHROMYCIN [Concomitant]
     Active Substance: AZITHROMYCIN
  28. OXYBUTYNIN [Concomitant]
     Active Substance: OXYBUTYNIN\OXYBUTYNIN CHLORIDE
  29. SYNTHROID [Concomitant]
     Active Substance: LEVOTHYROXINE SODIUM
  30. AMOXICILLIN\CLAVULANIC ACID [Concomitant]
     Active Substance: AMOXICILLIN\CLAVULANIC ACID
     Dosage: 875-125 MG
  31. AMOXICILLIN [Concomitant]
     Active Substance: AMOXICILLIN
  32. AUTOLOGOUS HUMAN CORNEAL EPITHELIAL CELLS [Concomitant]
  33. GENTEAL MODERATE TO SEVERE GEL DROPS [Concomitant]
     Active Substance: CARBOXYMETHYLCELLULOSE SODIUM\HYPROMELLOSES

REACTIONS (2)
  - Eye haemorrhage [Recovered/Resolved]
  - Eye pain [Unknown]

NARRATIVE: CASE EVENT DATE: 20240422
